FAERS Safety Report 22169881 (Version 2)
Quarter: 2023Q2

REPORT INFORMATION
  Report Type: Spontaneous
  Country: RO (occurrence: RO)
  Receive Date: 20230404
  Receipt Date: 20230511
  Transmission Date: 20230722
  Serious: Yes (Hospitalization)
  Sender: FDA-Public Use
  Company Number: RO-BIOVITRUM-2023-RO-008206

PATIENT
  Sex: Male

DRUGS (8)
  1. DOPTELET [Suspect]
     Active Substance: AVATROMBOPAG MALEATE
     Indication: Immune thrombocytopenia
     Dosage: 20 MG/DAY AT 9.000
     Route: 048
     Dates: start: 20230313
  2. DOPTELET [Suspect]
     Active Substance: AVATROMBOPAG MALEATE
     Dosage: 20 MG/DAY AT 9.000
     Route: 048
     Dates: start: 20230320
  3. IMODIUM [Concomitant]
     Active Substance: LOPERAMIDE HYDROCHLORIDE
     Indication: Product used for unknown indication
  4. CYCLOSPORINE [Concomitant]
     Active Substance: CYCLOSPORINE
     Indication: Product used for unknown indication
  5. RITUXIMAB [Concomitant]
     Active Substance: RITUXIMAB
     Indication: Product used for unknown indication
  6. Imunglobuline [Concomitant]
     Indication: Product used for unknown indication
  7. NPLATE [Concomitant]
     Active Substance: ROMIPLOSTIM
     Indication: Product used for unknown indication
  8. ELTROMBOPAG OLAMINE [Concomitant]
     Active Substance: ELTROMBOPAG OLAMINE
     Indication: Product used for unknown indication

REACTIONS (4)
  - Diarrhoea [Recovered/Resolved]
  - Rash [Recovered/Resolved]
  - Food intolerance [Recovered/Resolved]
  - Platelet count decreased [Recovered/Resolved]

NARRATIVE: CASE EVENT DATE: 20230320
